FAERS Safety Report 5100687-4 (Version None)
Quarter: 2006Q3

REPORT INFORMATION
  Report Type: 
  Country: None (occurrence: None)
  Receive Date: 20060906
  Receipt Date: 20060615
  Transmission Date: 20061208
  Serious: Yes (Hospitalization)
  Sender: FDA-Public Use
  Company Number: ALMO2006059

PATIENT
  Age: 40 Year
  Sex: Female

DRUGS (1)
  1. AXERT [Suspect]
     Indication: MIGRAINE

REACTIONS (1)
  - DRUG HYPERSENSITIVITY [None]
